FAERS Safety Report 4441071-6 (Version None)
Quarter: 2004Q3

REPORT INFORMATION
  Report Type: 
  Country: None (occurrence: None)
  Receive Date: 20040902
  Receipt Date: 20040902
  Transmission Date: 20050211
  Serious: Yes (Other)
  Sender: FDA-Public Use
  Company Number: None

PATIENT
  Age: 56 Year
  Sex: Male
  Weight: 90.2658 kg

DRUGS (5)
  1. ZETIA [Suspect]
     Indication: HYPERLIPIDAEMIA
     Dosage: 10 MG DAILY ORAL
     Route: 048
     Dates: start: 20040714, end: 20040901
  2. LIPITOR [Concomitant]
  3. SULFA TRIMETHOPRIM [Concomitant]
  4. IBUPROFEN [Concomitant]
  5. M.V.I. [Concomitant]

REACTIONS (1)
  - UNEXPECTED THERAPEUTIC DRUG EFFECT [None]
